FAERS Safety Report 4974473-X (Version None)
Quarter: 2006Q1

REPORT INFORMATION
  Report Type: 
  Country: None (occurrence: None)
  Receive Date: 20060227
  Receipt Date: 20051111
  Transmission Date: 20060701
  Serious: No
  Sender: FDA-Public Use
  Company Number: PHEH2005US11242

PATIENT
  Age: 71 Year
  Sex: Female

DRUGS (7)
  1. ENABLEX [Suspect]
     Indication: URGE INCONTINENCE
     Dosage: 7.5 MG/DAY, ORAL
     Route: 048
     Dates: start: 20050919
  2. SYNTHROID [Concomitant]
  3. LISINOPRIL [Concomitant]
  4. DIOVAN [Concomitant]
  5. NORVASC  /DEN/ (AMLODIPINE BESILATE) [Concomitant]
  6. ALLEGRA [Concomitant]
  7. ALEVE [Concomitant]

REACTIONS (1)
  - BLOOD PRESSURE INCREASED [None]
